FAERS Safety Report 8329064-X (Version None)
Quarter: 2012Q2

REPORT INFORMATION
  Report Type: 
  Country: None (occurrence: None)
  Receive Date: 20120502
  Receipt Date: 20120427
  Transmission Date: 20120825
  Serious: No
  Sender: FDA-Public Use
  Company Number: US-PFIZER INC-2012105398

PATIENT
  Sex: Female
  Weight: 90.703 kg

DRUGS (5)
  1. LYRICA [Suspect]
     Indication: FIBROMYALGIA
     Dosage: UNK, 2X/DAY
     Route: 048
  2. TOPIRAMATE [Concomitant]
     Indication: CONVULSION
     Dosage: 50 MG, DAILY
  3. RANEXA [Concomitant]
     Indication: CHEST PAIN
     Dosage: 500 MG, 2X/DAY
  4. LYRICA [Suspect]
     Indication: CONVULSION
     Dosage: 300 MG, 2X/DAY
     Route: 048
  5. CRESTOR [Concomitant]
     Dosage: UNK

REACTIONS (1)
  - DRUG INEFFECTIVE [None]
